FAERS Safety Report 9019160 (Version 1)
Quarter: 2013Q1

REPORT INFORMATION
  Report Type: Spontaneous
  Country: US (occurrence: US)
  Receive Date: 20130118
  Receipt Date: 20130118
  Transmission Date: 20140127
  Serious: No
  Sender: FDA-Public Use
  Company Number: US-ASTRAZENECA-2013SE03390

PATIENT
  Age: 69 Year
  Sex: Male
  Weight: 97.5 kg

DRUGS (4)
  1. LISINOPRIL [Suspect]
     Indication: CORONARY ARTERIAL STENT INSERTION
     Route: 048
     Dates: start: 20121116, end: 201212
  2. BRILINTA [Suspect]
     Indication: CORONARY ARTERIAL STENT INSERTION
     Route: 048
     Dates: start: 20121116
  3. ASPIRIN [Concomitant]
     Indication: DRUG THERAPY
  4. LIPITOR [Concomitant]
     Indication: CORONARY ARTERIAL STENT INSERTION

REACTIONS (4)
  - Anxiety [Not Recovered/Not Resolved]
  - Panic attack [Not Recovered/Not Resolved]
  - Diarrhoea [Not Recovered/Not Resolved]
  - Dizziness [Not Recovered/Not Resolved]
